FAERS Safety Report 6230875-5 (Version None)
Quarter: 2009Q2

REPORT INFORMATION
  Report Type: 
  Country: None (occurrence: None)
  Receive Date: 20090616
  Receipt Date: 20090605
  Transmission Date: 20091009
  Serious: Yes (Other)
  Sender: FDA-Public Use
  Company Number: PHHY2009BR22353

PATIENT
  Sex: Female

DRUGS (2)
  1. EXELON [Suspect]
     Dosage: 1.5 MG, UNK
  2. EXELON [Suspect]
     Dosage: 3 MG, TWO TABLETS DAILY
     Dates: start: 20090604

REACTIONS (5)
  - DELIRIUM [None]
  - DIZZINESS [None]
  - PANIC REACTION [None]
  - SALIVARY HYPERSECRETION [None]
  - TREMOR [None]
